FAERS Safety Report 10313957 (Version 1)
Quarter: 2014Q3

REPORT INFORMATION
  Report Type: Spontaneous
  Country: FR (occurrence: None)
  Receive Date: 20140716
  Receipt Date: 20140716
  Transmission Date: 20150326
  Serious: Yes (Hospitalization)
  Sender: FDA-Public Use
  Company Number: 2430060

PATIENT
  Age: 69 Year

DRUGS (2)
  1. GEMCITABINE HYDROCHLORIDE) [Suspect]
     Active Substance: GEMCITABINE HYDROCHLORIDE
     Indication: ADENOCARCINOMA PANCREAS
     Dosage: 1000 MG/M2 MILLIGRAM(S)/SQ. METER (1 WEEK)
     Route: 041
  2. PANCREATIN [Concomitant]
     Active Substance: PANCRELIPASE

REACTIONS (3)
  - Erythema [None]
  - Myopathy [None]
  - Myalgia [None]
